FAERS Safety Report 7320340-6 (Version None)
Quarter: 2011Q1

REPORT INFORMATION
  Report Type: 
  Country: None (occurrence: None)
  Receive Date: 20110228
  Receipt Date: 20110214
  Transmission Date: 20110831
  Serious: Yes (Death, Hospitalization, Other)
  Sender: FDA-Public Use
  Company Number: JP-CELGENEUS-087-21880-10110108

PATIENT
  Age: 67 Year
  Sex: Female

DRUGS (19)
  1. LENADEX [Suspect]
     Route: 048
     Dates: start: 20101016, end: 20101022
  2. PURSENNID [Concomitant]
     Indication: PROPHYLAXIS
     Route: 048
     Dates: start: 20100901, end: 20101013
  3. REVLIMID [Suspect]
     Route: 048
     Dates: start: 20101016, end: 20101022
  4. LENADEX [Suspect]
     Route: 048
     Dates: start: 20100922, end: 20101016
  5. ADALAT CC [Concomitant]
     Indication: HYPERTENSION
     Route: 048
     Dates: start: 20100901, end: 20100914
  6. BAKTAR [Concomitant]
     Indication: PROPHYLAXIS
     Route: 048
     Dates: start: 20101020, end: 20101026
  7. ALOSENN [Concomitant]
     Indication: PROPHYLAXIS
     Route: 048
     Dates: start: 20100918, end: 20100924
  8. OXYCONTIN [Concomitant]
     Route: 048
     Dates: start: 20100901, end: 20100914
  9. PARIET [Concomitant]
     Indication: PROPHYLAXIS
     Route: 048
     Dates: start: 20100901, end: 20101026
  10. REVLIMID [Suspect]
     Route: 048
     Dates: start: 20100929, end: 20101005
  11. OXINORM [Concomitant]
     Route: 048
     Dates: start: 20100915
  12. STARSIS [Concomitant]
     Indication: DIABETES MELLITUS
     Route: 048
     Dates: start: 20100901, end: 20100914
  13. LENADEX [Suspect]
     Indication: MULTIPLE MYELOMA
     Route: 048
     Dates: start: 20100901, end: 20100914
  14. ALOSENN [Concomitant]
     Route: 048
     Dates: start: 20101014, end: 20101020
  15. GOODMIN [Concomitant]
     Route: 048
     Dates: start: 20100901, end: 20101026
  16. STARSIS [Concomitant]
     Route: 048
     Dates: start: 20100929, end: 20101005
  17. BAKTAR [Concomitant]
     Indication: PNEUMONIA
  18. DEXART [Concomitant]
     Indication: MULTIPLE MYELOMA
     Route: 041
     Dates: start: 20100915, end: 20100921
  19. REVLIMID [Suspect]
     Indication: MULTIPLE MYELOMA
     Route: 048
     Dates: start: 20100901, end: 20100914

REACTIONS (8)
  - HYPOKALAEMIA [None]
  - HAEMOGLOBIN DECREASED [None]
  - RENAL IMPAIRMENT [None]
  - NEUTROPHIL COUNT DECREASED [None]
  - LEUKOPENIA [None]
  - PNEUMONIA [None]
  - THROMBOCYTOPENIA [None]
  - CYTOMEGALOVIRUS INFECTION [None]
